FAERS Safety Report 5870347-0 (Version None)
Quarter: 2008Q3

REPORT INFORMATION
  Report Type: 
  Country: None (occurrence: None)
  Receive Date: 20080904
  Receipt Date: 20071001
  Transmission Date: 20090109
  Serious: No
  Sender: FDA-Public Use
  Company Number: US-BRISTOL-MYERS SQUIBB COMPANY-13925755

PATIENT
  Age: 76 Year
  Sex: Male

DRUGS (1)
  1. DEFINITY [Suspect]
     Indication: ECHOCARDIOGRAM
     Dosage: DILUTED TO MAKE 10CC
     Route: 042
     Dates: start: 20071001, end: 20071001

REACTIONS (2)
  - NAUSEA [None]
  - VOMITING [None]
